FAERS Safety Report 7381585-2 (Version None)
Quarter: 2011Q1

REPORT INFORMATION
  Report Type: 
  Country: None (occurrence: None)
  Receive Date: 20110329
  Receipt Date: 20110113
  Transmission Date: 20110831
  Serious: Yes (Other)
  Sender: FDA-Public Use
  Company Number: PHHY2011CL02760

PATIENT
  Age: 89 Year
  Sex: Female

DRUGS (3)
  1. ACLASTA [Suspect]
     Indication: OSTEOPOROSIS
     Dosage: 5 MG
  2. TAREG [Concomitant]
     Dosage: 160 MG
  3. MICROSER [Concomitant]

REACTIONS (3)
  - UPPER LIMB FRACTURE [None]
  - FALL [None]
  - WRIST FRACTURE [None]
